FAERS Safety Report 9297530 (Version 3)
Quarter: 2013Q4

REPORT INFORMATION
  Report Type: Report from Study
  Country: JP (occurrence: JP)
  Receive Date: 20130520
  Receipt Date: 20131227
  Transmission Date: 20140711
  Serious: No
  Sender: FDA-Public Use
  Company Number: JP-AMGEN-JPNCT2013035158

PATIENT
  Age: 65 Year
  Sex: Female
  Weight: 43 kg

DRUGS (19)
  1. DENOSUMAB [Suspect]
     Indication: METASTASES TO BONE
     Dosage: 120 MG, UNK
     Route: 058
     Dates: start: 20121107, end: 20130109
  2. IRINOTECAN [Concomitant]
     Dosage: UNK UNK, UNK
     Route: 065
     Dates: start: 20120530, end: 20130109
  3. IRINOTECAN [Concomitant]
  4. CISPLATIN [Concomitant]
     Dosage: UNK
     Route: 065
     Dates: start: 20120530, end: 20120711
  5. LEUCOVORIN [Concomitant]
     Dosage: UNK UNK, UNK
     Route: 065
     Dates: start: 20120813, end: 20130109
  6. OXALIPLATIN [Concomitant]
     Dosage: UNK
     Route: 065
     Dates: start: 20120813, end: 20120924
  7. UFT [Concomitant]
     Dosage: UNK
     Route: 065
     Dates: start: 20121126, end: 20130109
  8. BEVACIZUMAB [Concomitant]
     Dosage: UNK
     Route: 065
     Dates: start: 20121126, end: 20130109
  9. VOLTAREN [Concomitant]
     Dosage: UNK
     Route: 048
     Dates: start: 20121029, end: 20121205
  10. GAMOFA D [Concomitant]
     Dosage: UNK
     Route: 048
     Dates: start: 20121107, end: 20121205
  11. BIOFERMIN R [Concomitant]
     Dosage: UNK
     Route: 048
     Dates: start: 20121126, end: 20130201
  12. LEVOFOLINATE CALCIUM [Concomitant]
     Route: 065
     Dates: start: 20120813, end: 20120924
  13. TEGAFUR W/URACIL [Concomitant]
     Dosage: UNK
     Route: 065
     Dates: start: 20121126, end: 20130109
  14. CALCIUM FOLINATE [Concomitant]
     Dosage: UNK
     Route: 065
     Dates: start: 20121126, end: 20130109
  15. FLUOROURACIL [Concomitant]
     Route: 065
     Dates: start: 20120813, end: 20120924
  16. VOLTAREN                           /00372301/ [Concomitant]
     Route: 048
     Dates: start: 20121029, end: 20121205
  17. ASPARA-CA [Concomitant]
     Route: 048
     Dates: start: 20121107, end: 20121126
  18. ALFAROL [Concomitant]
     Dosage: 0.75 MUG, UNK
     Route: 048
     Dates: start: 20121107, end: 20130124
  19. CALCICHEW [Concomitant]
     Route: 048
     Dates: start: 20121107, end: 20121126

REACTIONS (1)
  - Neuropathy peripheral [Recovering/Resolving]
